FAERS Safety Report 6380602-6 (Version None)
Quarter: 2009Q3

REPORT INFORMATION
  Report Type: 
  Country: None (occurrence: None)
  Receive Date: 20090929
  Receipt Date: 20090922
  Transmission Date: 20100115
  Serious: Yes (Hospitalization)
  Sender: FDA-Public Use
  Company Number: US-ELI_LILLY_AND_COMPANY-US200906004623

PATIENT
  Sex: Male
  Weight: 52.1 kg

DRUGS (5)
  1. SOMATROPIN [Suspect]
     Indication: DWARFISM
     Dosage: 2.8 MG, DAILY (1/D)
     Route: 058
     Dates: start: 20050317, end: 20090106
  2. SOMATROPIN [Suspect]
     Dosage: 2.8 MG, DAILY (1/D)
     Route: 058
     Dates: start: 20090216, end: 20090601
  3. GEODON [Concomitant]
     Indication: DEPRESSION
  4. REMERON [Concomitant]
     Indication: DEPRESSION
  5. RESTORIL [Concomitant]
     Indication: SLEEP DISORDER
     Dates: end: 20090105

REACTIONS (2)
  - ANOREXIA NERVOSA [None]
  - SUICIDE ATTEMPT [None]
